FAERS Safety Report 16354203 (Version 2)
Quarter: 2020Q1

REPORT INFORMATION
  Report Type: Spontaneous
  Country: US (occurrence: US)
  Receive Date: 20190524
  Receipt Date: 20200331
  Transmission Date: 20200409
  Serious: Yes (Other)
  Sender: FDA-Public Use
  Company Number: US-GILEAD-2019-0408528

PATIENT
  Age: 51 Year
  Sex: Male

DRUGS (23)
  1. MELOXICAM. [Concomitant]
     Active Substance: MELOXICAM
  2. HYDROCORTISONE. [Concomitant]
     Active Substance: HYDROCORTISONE
  3. FLUTICASONE. [Concomitant]
     Active Substance: FLUTICASONE
  4. DESONIDE. [Concomitant]
     Active Substance: DESONIDE
  5. CYCLOBENZAPRINE. [Concomitant]
     Active Substance: CYCLOBENZAPRINE
  6. CRESTOR [Concomitant]
     Active Substance: ROSUVASTATIN CALCIUM
  7. BACTRIM DS [Concomitant]
     Active Substance: SULFAMETHOXAZOLE\TRIMETHOPRIM
  8. RANITIDINE. [Concomitant]
     Active Substance: RANITIDINE
  9. FENOFIBRATE. [Concomitant]
     Active Substance: FENOFIBRATE
  10. OMEPRAZOLE. [Concomitant]
     Active Substance: OMEPRAZOLE
  11. CEPHALEXIN AMEL [Concomitant]
     Active Substance: CEPHALEXIN
  12. KETOCONAZOLE. [Concomitant]
     Active Substance: KETOCONAZOLE
  13. IBUPROFEN. [Concomitant]
     Active Substance: IBUPROFEN
  14. GENVOYA [Concomitant]
     Active Substance: COBICISTAT\ELVITEGRAVIR\EMTRICITABINE\TENOFOVIR ALAFENAMIDE FUMARATE
  15. PRAVACHOL [Concomitant]
     Active Substance: PRAVASTATIN SODIUM
  16. ATORVASTATIN [Concomitant]
     Active Substance: ATORVASTATIN
  17. GEMFIBROZIL. [Concomitant]
     Active Substance: GEMFIBROZIL
  18. MOMETASONE [Concomitant]
     Active Substance: MOMETASONE
  19. GABAPENTIN. [Concomitant]
     Active Substance: GABAPENTIN
  20. CLINDAMYCIN. [Concomitant]
     Active Substance: CLINDAMYCIN
  21. ATRIPLA [Suspect]
     Active Substance: EFAVIRENZ\EMTRICITABINE\TENOFOVIR DISOPROXIL FUMARATE
     Indication: HIV INFECTION
     Dosage: 1 DOSAGE FORM, QD
     Route: 048
     Dates: start: 2006, end: 2018
  22. ATRIPLA [Suspect]
     Active Substance: EFAVIRENZ\EMTRICITABINE\TENOFOVIR DISOPROXIL FUMARATE
     Dosage: 1 DOSAGE FORM, QD
     Route: 048
     Dates: start: 200710, end: 201711
  23. DOXYCYCLINE. [Concomitant]
     Active Substance: DOXYCYCLINE

REACTIONS (10)
  - Chronic kidney disease [Not Recovered/Not Resolved]
  - Bone density abnormal [Unknown]
  - Anhedonia [Unknown]
  - Anxiety [Unknown]
  - Economic problem [Unknown]
  - Emotional distress [Unknown]
  - Bone density decreased [Unknown]
  - Bone loss [Unknown]
  - Pain [Unknown]
  - Tooth loss [Recovered/Resolved]

NARRATIVE: CASE EVENT DATE: 201502
